FAERS Safety Report 24886827 (Version 1)
Quarter: 2025Q1

REPORT INFORMATION
  Report Type: Spontaneous
  Country: KR (occurrence: KR)
  Receive Date: 20250126
  Receipt Date: 20250126
  Transmission Date: 20250409
  Serious: Yes (Other)
  Sender: TAKEDA
  Company Number: KR-TAKEDA-2025TUS005406

PATIENT
  Age: 37 Year
  Sex: Female

DRUGS (4)
  1. LIVTENCITY [Suspect]
     Active Substance: MARIBAVIR
     Indication: Cytomegalovirus infection
  2. THYMOGLOBULIN [Concomitant]
     Active Substance: LAPINE T-LYMPHOCYTE IMMUNE GLOBULIN
  3. PROGRAF [Concomitant]
     Active Substance: TACROLIMUS
  4. CELLCEPT [Concomitant]
     Active Substance: MYCOPHENOLATE MOFETIL

REACTIONS (4)
  - Complications of transplanted pancreas [Unknown]
  - Drug ineffective [Unknown]
  - Insurance issue [Unknown]
  - Off label use [Unknown]
